FAERS Safety Report 24122331 (Version 1)
Quarter: 2024Q3

REPORT INFORMATION
  Report Type: Spontaneous
  Country: US (occurrence: US)
  Receive Date: 20240722
  Receipt Date: 20240722
  Transmission Date: 20241017
  Serious: Yes (Death, Other)
  Sender: BRISTOL MYERS SQUIBB
  Company Number: US-BRISTOL-MYERS SQUIBB COMPANY-2024-115929

PATIENT
  Age: 80 Year
  Sex: Male
  Weight: 109.6 kg

DRUGS (13)
  1. REVLIMID [Suspect]
     Active Substance: LENALIDOMIDE
     Indication: Methylmalonic acidaemia
     Route: 048
     Dates: start: 20240412, end: 20240717
  2. REVLIMID [Suspect]
     Active Substance: LENALIDOMIDE
     Indication: Plasma cell myeloma
  3. CARVEDILOL [Concomitant]
     Active Substance: CARVEDILOL
     Indication: Product used for unknown indication
  4. DILTIAZEM [Concomitant]
     Active Substance: DILTIAZEM
     Indication: Product used for unknown indication
     Dosage: DILTIAZEM CD 120MG CAPSULES (24 HR)
  5. ELIQUIS [Concomitant]
     Active Substance: APIXABAN
     Indication: Product used for unknown indication
     Dosage: ELIQUIS 5MG TABLETS
  6. TRAZODONE [Concomitant]
     Active Substance: TRAZODONE HYDROCHLORIDE
     Indication: Product used for unknown indication
     Dosage: TRAZODONE 100MG TABLETS
  7. ACETAMINOPHEN [Concomitant]
     Active Substance: ACETAMINOPHEN
     Indication: Product used for unknown indication
  8. ACYCLOVIR [Concomitant]
     Active Substance: ACYCLOVIR
     Indication: Product used for unknown indication
  9. PROAIR HFA [Concomitant]
     Active Substance: ALBUTEROL SULFATE
     Indication: Product used for unknown indication
     Dosage: PROAIR HFA ORAL INH (200 PFS) 8.5G
     Route: 048
  10. PERI-COLACE [Concomitant]
     Active Substance: CASANTHRANOL\DOCUSATE SODIUM
     Indication: Product used for unknown indication
  11. TRAMADOL [Concomitant]
     Active Substance: TRAMADOL\TRAMADOL HYDROCHLORIDE
     Indication: Product used for unknown indication
     Dosage: TRAMADOL 50MG TABLETS
  12. DULOXETINE [Concomitant]
     Active Substance: DULOXETINE
     Indication: Product used for unknown indication
     Dosage: DULOXETINE DR 60MG CAPSULES
  13. TAMSULOSIN [Concomitant]
     Active Substance: TAMSULOSIN
     Indication: Product used for unknown indication
     Dosage: DULOXETINE DR 60MG CAPSULES

REACTIONS (2)
  - Death [Fatal]
  - Off label use [Unknown]

NARRATIVE: CASE EVENT DATE: 20240717
